FAERS Safety Report 23896642 (Version 1)
Quarter: 2024Q2

REPORT INFORMATION
  Report Type: Spontaneous
  Country: US (occurrence: None)
  Receive Date: 20240524
  Receipt Date: 20240524
  Transmission Date: 20240716
  Serious: Yes (Hospitalization)
  Sender: FDA-Public Use
  Company Number: None

PATIENT
  Sex: Male
  Weight: 83.7 kg

DRUGS (1)
  1. CISPLATIN [Suspect]
     Active Substance: CISPLATIN
     Indication: Squamous cell carcinoma of head and neck
     Dates: start: 20231129, end: 20240507

REACTIONS (4)
  - Haematemesis [None]
  - Pharyngeal haemorrhage [None]
  - Pharyngeal inflammation [None]
  - Heart rate increased [None]

NARRATIVE: CASE EVENT DATE: 20240506
